FAERS Safety Report 8888347 (Version 2)
Quarter: 2013Q1

REPORT INFORMATION
  Report Type: Spontaneous
  Country: US (occurrence: US)
  Receive Date: 20121106
  Receipt Date: 20130326
  Transmission Date: 20140127
  Serious: Yes (Disabling, Other)
  Sender: FDA-Public Use
  Company Number: US-PFIZER INC-2012274397

PATIENT
  Age: 43 Year
  Sex: Female

DRUGS (10)
  1. CHANTIX [Suspect]
     Indication: SMOKING CESSATION THERAPY
     Dosage: STARTING MONTH PACK
     Dates: start: 200802, end: 200802
  2. ATIVAN [Concomitant]
     Indication: ANXIETY
     Dosage: UNK
     Dates: start: 200203
  3. CLEOCIN [Concomitant]
     Indication: THERAPEUTIC SKIN CARE TOPICAL
     Dosage: UNK
     Dates: start: 199610
  4. VENTOLIN [Concomitant]
     Indication: PNEUMONIA
     Dosage: UNK
     Dates: start: 200312
  5. VENTOLIN [Concomitant]
     Indication: BRONCHITIS
  6. BENZOYL PEROXIDE/ERYTHROMYCIN [Concomitant]
     Indication: THERAPEUTIC SKIN CARE TOPICAL
     Dosage: UNK
     Dates: start: 200209, end: 201006
  7. RETIN A [Concomitant]
     Indication: THERAPEUTIC SKIN CARE TOPICAL
     Dosage: UNK
     Dates: start: 200702, end: 201201
  8. WELLBUTRIN XL [Concomitant]
     Indication: DEPRESSION
     Dosage: UNK
     Dates: start: 200606
  9. WELLBUTRIN SR [Concomitant]
     Indication: DEPRESSION
     Dosage: UNK
     Dates: start: 200606
  10. NICODERM CQ [Concomitant]
     Indication: SMOKING CESSATION THERAPY
     Dosage: UNK
     Dates: start: 200709, end: 200904

REACTIONS (17)
  - Mental disorder [Not Recovered/Not Resolved]
  - Suicidal ideation [Recovered/Resolved]
  - Intentional self-injury [Unknown]
  - Bipolar disorder [Not Recovered/Not Resolved]
  - Major depression [Unknown]
  - Aggression [Not Recovered/Not Resolved]
  - Anxiety [Not Recovered/Not Resolved]
  - Panic disorder [Not Recovered/Not Resolved]
  - Paranoid personality disorder [Not Recovered/Not Resolved]
  - Delusional perception [Not Recovered/Not Resolved]
  - Affect lability [Not Recovered/Not Resolved]
  - Obsessive-compulsive disorder [Not Recovered/Not Resolved]
  - Attention deficit/hyperactivity disorder [Not Recovered/Not Resolved]
  - Abnormal dreams [Not Recovered/Not Resolved]
  - Psychotic disorder [Not Recovered/Not Resolved]
  - Irritability [Unknown]
  - Physical assault [Unknown]
